FAERS Safety Report 25490491 (Version 1)
Quarter: 2025Q2

REPORT INFORMATION
  Report Type: Spontaneous
  Country: US (occurrence: US)
  Receive Date: 20250627
  Receipt Date: 20250627
  Transmission Date: 20250716
  Serious: No
  Sender: MERCK SHARP & DOHME LLC
  Company Number: US-009507513-2293032

PATIENT
  Sex: Female
  Weight: 86.183 kg

DRUGS (24)
  1. SOTATERCEPT [Suspect]
     Active Substance: SOTATERCEPT
     Indication: Product used for unknown indication
  2. SOTATERCEPT [Suspect]
     Active Substance: SOTATERCEPT
  3. SOTATERCEPT [Suspect]
     Active Substance: SOTATERCEPT
  4. SOTATERCEPT [Suspect]
     Active Substance: SOTATERCEPT
  5. REMODULIN [Suspect]
     Active Substance: TREPROSTINIL
     Indication: Pulmonary arterial hypertension
     Route: 041
     Dates: start: 20180521
  6. OZEMPIC [Concomitant]
     Active Substance: SEMAGLUTIDE
  7. METFORMIN HYDROCHLORIDE [Concomitant]
     Active Substance: METFORMIN HYDROCHLORIDE
  8. FLUTICASONE PROPIONATE [Concomitant]
     Active Substance: FLUTICASONE PROPIONATE
  9. MINERALS\VITAMINS [Concomitant]
     Active Substance: MINERALS\VITAMINS
  10. TYLENOL [Concomitant]
     Active Substance: ACETAMINOPHEN
  11. PULMICORT FLEXHALER [Concomitant]
     Active Substance: BUDESONIDE
  12. POTASSIUM CHLORIDE [Concomitant]
     Active Substance: POTASSIUM CHLORIDE
  13. WELLBUTRIN SR [Concomitant]
     Active Substance: BUPROPION HYDROCHLORIDE
  14. BUMETANIDE [Concomitant]
     Active Substance: BUMETANIDE
  15. ALBUTEROL SULFATE [Concomitant]
     Active Substance: ALBUTEROL SULFATE
  16. OXYBUTYNIN CHLORIDE [Concomitant]
     Active Substance: OXYBUTYNIN CHLORIDE
     Route: 048
  17. OMEPRAZOLE [Concomitant]
     Active Substance: OMEPRAZOLE
  18. OXYGEN [Concomitant]
     Active Substance: OXYGEN
  19. SPIRONOLACTONE [Concomitant]
     Active Substance: SPIRONOLACTONE
  20. ARMOUR THYROID [Concomitant]
     Active Substance: THYROID, PORCINE
  21. ZYRTEC [Concomitant]
     Active Substance: CETIRIZINE HYDROCHLORIDE
  22. VITAMIN D3 [Concomitant]
     Active Substance: CHOLECALCIFEROL
  23. SILDENAFIL [Concomitant]
     Active Substance: SILDENAFIL
  24. MELOXICAM [Concomitant]
     Active Substance: MELOXICAM

REACTIONS (1)
  - Haemoglobin increased [Unknown]
